FAERS Safety Report 7198603-7 (Version None)
Quarter: 2010Q4

REPORT INFORMATION
  Report Type: 
  Country: None (occurrence: None)
  Receive Date: 20101227
  Receipt Date: 20101216
  Transmission Date: 20110411
  Serious: Yes (Other)
  Sender: FDA-Public Use
  Company Number: FR-JNJFOC-20101206187

PATIENT
  Age: 31 Year
  Sex: Female

DRUGS (6)
  1. REMICADE [Suspect]
     Indication: CROHN'S DISEASE
     Route: 042
  2. REMICADE [Suspect]
     Route: 042
  3. IMUREL [Suspect]
     Indication: CROHN'S DISEASE
     Route: 048
  4. CORTANCYL [Concomitant]
  5. PENTASA [Concomitant]
  6. VALACYCLOVIR HYDROCHLORIDE (VALTREX) [Concomitant]

REACTIONS (1)
  - ALOPECIA [None]
